FAERS Safety Report 6814869-4 (Version None)
Quarter: 2010Q3

REPORT INFORMATION
  Report Type: 
  Country: None (occurrence: None)
  Receive Date: 20100702
  Receipt Date: 20100701
  Transmission Date: 20110219
  Serious: Yes (Other)
  Sender: FDA-Public Use
  Company Number: D0067729A

PATIENT
  Sex: Male

DRUGS (4)
  1. AVODART [Suspect]
     Route: 048
  2. METFORMIN HCL [Concomitant]
     Dosage: 850MG UNKNOWN
     Route: 048
  3. ASPIRIN [Concomitant]
     Route: 048
  4. OMEPRAZOLE [Concomitant]
     Dosage: 10MG UNKNOWN
     Route: 048

REACTIONS (2)
  - DIZZINESS [None]
  - LOSS OF CONSCIOUSNESS [None]
